FAERS Safety Report 16918151 (Version 2)
Quarter: 2019Q4

REPORT INFORMATION
  Report Type: Spontaneous
  Country: US (occurrence: US)
  Receive Date: 20191015
  Receipt Date: 20191018
  Transmission Date: 20200122
  Serious: Yes (Other)
  Sender: FDA-Public Use
  Company Number: US-ASTRAZENECA-2019SF43979

PATIENT
  Age: 828 Month
  Sex: Female
  Weight: 80.3 kg

DRUGS (9)
  1. FLUCONAZOLE. [Concomitant]
     Active Substance: FLUCONAZOLE
     Indication: LEUKAEMIA
     Route: 048
  2. PROCHLORPERAVINE [Concomitant]
     Indication: NAUSEA
     Dosage: 10.0MG EVERY 4 - 6 HOURS
     Route: 048
     Dates: start: 201907
  3. METFORMIN [Concomitant]
     Active Substance: METFORMIN HYDROCHLORIDE
  4. CIPROFLOXACIN. [Concomitant]
     Active Substance: CIPROFLOXACIN
     Indication: LEUKAEMIA
     Route: 048
     Dates: start: 201907
  5. VENCLEXTA [Concomitant]
     Active Substance: VENETOCLAX
     Indication: LEUKAEMIA
     Route: 048
     Dates: start: 201907, end: 20191007
  6. ONDANSETRON [Concomitant]
     Active Substance: ONDANSETRON
     Indication: NAUSEA
     Dosage: 4.0MG EVERY 4 - 6 HOURS
     Route: 048
     Dates: start: 201907
  7. ACYCLOVIR. [Concomitant]
     Active Substance: ACYCLOVIR
     Indication: LEUKAEMIA
     Route: 048
     Dates: start: 201907
  8. BYDUREON BCISE [Suspect]
     Active Substance: EXENATIDE
     Indication: TYPE 2 DIABETES MELLITUS
     Route: 058
     Dates: start: 201901
  9. BYDUREON [Suspect]
     Active Substance: EXENATIDE
     Indication: TYPE 2 DIABETES MELLITUS
     Route: 058
     Dates: start: 2017, end: 201812

REACTIONS (11)
  - Haemoglobin decreased [Unknown]
  - Wrong technique in device usage process [Unknown]
  - Red blood cell count decreased [Unknown]
  - White blood cell count decreased [Unknown]
  - Intentional device misuse [Unknown]
  - Injection site haemorrhage [Recovered/Resolved]
  - Device malfunction [Unknown]
  - Nausea [Unknown]
  - Leukaemia [Unknown]
  - Injection site bruising [Unknown]
  - Injection site pain [Recovered/Resolved]

NARRATIVE: CASE EVENT DATE: 201907
